FAERS Safety Report 14320627 (Version 1)
Quarter: 2017Q4

REPORT INFORMATION
  Report Type: Spontaneous
  Country: US (occurrence: US)
  Receive Date: 20171222
  Receipt Date: 20171222
  Transmission Date: 20180321
  Serious: No
  Sender: FDA-Public Use
  Company Number: US-MYLANLABS-2017M1076698

PATIENT
  Age: 58 Year
  Sex: Female
  Weight: 68 kg

DRUGS (1)
  1. FENTANYL TRANSDERMAL SYSTEM [Suspect]
     Active Substance: FENTANYL
     Indication: BACK PAIN
     Dosage: 75 ?G, UNK
     Route: 062
     Dates: start: 20150101

REACTIONS (4)
  - Product quality issue [Unknown]
  - Product adhesion issue [Unknown]
  - No adverse event [Unknown]
  - Drug effect decreased [Recovered/Resolved]

NARRATIVE: CASE EVENT DATE: 20170901
